FAERS Safety Report 9697021 (Version 1)
Quarter: 2013Q4

REPORT INFORMATION
  Report Type: Spontaneous
  Country: US (occurrence: US)
  Receive Date: 20131120
  Receipt Date: 20131120
  Transmission Date: 20140711
  Serious: Yes (Hospitalization, Other)
  Sender: FDA-Public Use
  Company Number: US-AMGEN-USASP2013081159

PATIENT
  Age: 76 Year
  Sex: Female

DRUGS (1)
  1. ENBREL [Suspect]
     Indication: PSORIATIC ARTHROPATHY
     Dosage: UNK MG, QWK
     Route: 065
     Dates: start: 20020201, end: 200911

REACTIONS (4)
  - Shoulder arthroplasty [Recovered/Resolved]
  - Coccidioidomycosis [Recovered/Resolved]
  - Bursitis [Recovered/Resolved]
  - Mobility decreased [Not Recovered/Not Resolved]
